FAERS Safety Report 6042539-1 (Version None)
Quarter: 2009Q1

REPORT INFORMATION
  Report Type: 
  Country: None (occurrence: None)
  Receive Date: 20090118
  Receipt Date: 20090107
  Transmission Date: 20090719
  Serious: Yes (Hospitalization)
  Sender: FDA-Public Use
  Company Number: PH-PFIZER INC-2008157887

PATIENT

DRUGS (1)
  1. SUNITINIB MALATE [Suspect]
     Dosage: 37.5 MG, 1X/DAY
     Route: 048
     Dates: start: 20081208, end: 20081218

REACTIONS (3)
  - GASTRITIS [None]
  - OESOPHAGEAL CANDIDIASIS [None]
  - VOMITING [None]
